FAERS Safety Report 16849306 (Version 1)
Quarter: 2019Q3

REPORT INFORMATION
  Report Type: Spontaneous
  Country: BR (occurrence: BR)
  Receive Date: 20190925
  Receipt Date: 20190925
  Transmission Date: 20191005
  Serious: Yes (Other)
  Sender: FDA-Public Use
  Company Number: BR-AMGEN-BRASP2018155158

PATIENT
  Age: 7 Year
  Sex: Female

DRUGS (1)
  1. ENBREL [Suspect]
     Active Substance: ETANERCEPT
     Indication: PRODUCT USED FOR UNKNOWN INDICATION
     Dosage: UNK
     Route: 065
     Dates: start: 20181028, end: 201905

REACTIONS (6)
  - Injection site haemorrhage [Unknown]
  - Pain [Unknown]
  - Joint swelling [Unknown]
  - Injection site discolouration [Unknown]
  - Pain in extremity [Unknown]
  - Gait disturbance [Unknown]

NARRATIVE: CASE EVENT DATE: 20181028
